FAERS Safety Report 17702005 (Version 1)
Quarter: 2020Q2

REPORT INFORMATION
  Report Type: Spontaneous
  Country: IL (occurrence: IL)
  Receive Date: 20200423
  Receipt Date: 20200423
  Transmission Date: 20200714
  Serious: Yes (Other)
  Sender: FDA-Public Use
  Company Number: IL-PFIZER INC-2020160367

PATIENT
  Age: 24 Year
  Sex: Female

DRUGS (13)
  1. SERTRALINE HCL [Suspect]
     Active Substance: SERTRALINE HYDROCHLORIDE
     Indication: PSYCHOTIC BEHAVIOUR
     Dosage: UNK
  2. FLUOXETINE [Suspect]
     Active Substance: FLUOXETINE HYDROCHLORIDE
     Indication: EATING DISORDER
     Dosage: UNK
  3. CITALOPRAM [Suspect]
     Active Substance: CITALOPRAM HYDROBROMIDE
     Indication: EATING DISORDER
  4. FLUOXETINE [Suspect]
     Active Substance: FLUOXETINE HYDROCHLORIDE
     Indication: PSYCHOTIC BEHAVIOUR
  5. DULOXETINE. [Suspect]
     Active Substance: DULOXETINE
     Indication: PSYCHOTIC BEHAVIOUR
     Dosage: UNK
  6. ARIPIPRAZOLE. [Suspect]
     Active Substance: ARIPIPRAZOLE
     Indication: EATING DISORDER
  7. SERTRALINE HCL [Suspect]
     Active Substance: SERTRALINE HYDROCHLORIDE
     Indication: EATING DISORDER
  8. ARIPIPRAZOLE. [Suspect]
     Active Substance: ARIPIPRAZOLE
     Indication: PSYCHOTIC BEHAVIOUR
     Dosage: UNK
  9. CLOTIAPINE [Suspect]
     Active Substance: CLOTHIAPINE
     Indication: PSYCHOTIC BEHAVIOUR
     Dosage: UNK
  10. RITALIN LA [Concomitant]
     Active Substance: METHYLPHENIDATE HYDROCHLORIDE
     Indication: ATTENTION DEFICIT HYPERACTIVITY DISORDER
     Dosage: 30 MG, DAILY
  11. DULOXETINE. [Suspect]
     Active Substance: DULOXETINE
     Indication: EATING DISORDER
  12. CITALOPRAM [Suspect]
     Active Substance: CITALOPRAM HYDROBROMIDE
     Indication: DEPRESSION
     Dosage: 40 MG, DAILY
  13. CLOTIAPINE [Suspect]
     Active Substance: CLOTHIAPINE
     Indication: EATING DISORDER

REACTIONS (4)
  - Loss of consciousness [Unknown]
  - Hyponatraemia [Unknown]
  - Water intoxication [Unknown]
  - Therapeutic product effect incomplete [Unknown]
